FAERS Safety Report 18078398 (Version 2)
Quarter: 2020Q3

REPORT INFORMATION
  Report Type: Report from Study
  Country: AU (occurrence: AU)
  Receive Date: 20200727
  Receipt Date: 20200801
  Transmission Date: 20201103
  Serious: Yes (Death, Other)
  Sender: FDA-Public Use
  Company Number: NVSC2020AU209188

PATIENT
  Age: 81 Year
  Sex: Female

DRUGS (3)
  1. SANDOSTATIN LAR DEPOT [Suspect]
     Active Substance: OCTREOTIDE ACETATE
     Indication: METASTATIC CARCINOID TUMOUR
     Dosage: 30 MG, QMO
     Route: 030
     Dates: start: 201205
  2. SANDOSTATIN LAR DEPOT [Suspect]
     Active Substance: OCTREOTIDE ACETATE
     Indication: DIARRHOEA
  3. SANDOSTATIN LAR DEPOT [Suspect]
     Active Substance: OCTREOTIDE ACETATE

REACTIONS (13)
  - Dementia with Lewy bodies [Unknown]
  - Urinary tract infection [Unknown]
  - Vascular parkinsonism [Unknown]
  - Metastases to liver [Unknown]
  - Thyroid mass [Unknown]
  - Cachexia [Unknown]
  - Lacunar stroke [Unknown]
  - Amnesia [Unknown]
  - Abdominal discomfort [Unknown]
  - Death [Fatal]
  - Osteoporosis [Recovering/Resolving]
  - Dyslipidaemia [Unknown]
  - Asthenia [Unknown]

NARRATIVE: CASE EVENT DATE: 20200611
